FAERS Safety Report 8724497 (Version 2)
Quarter: 2013Q3

REPORT INFORMATION
  Report Type: Spontaneous
  Country: US (occurrence: US)
  Receive Date: 20120815
  Receipt Date: 20130927
  Transmission Date: 20140515
  Serious: No
  Sender: FDA-Public Use
  Company Number: US-BRISTOL-MYERS SQUIBB COMPANY-16763286

PATIENT
  Age: 53 Year
  Sex: Female
  Weight: 105.67 kg

DRUGS (1)
  1. ONGLYZA TABS 5 MG [Suspect]
     Indication: HYPERGLYCAEMIA
     Dosage: ALSO TAKEN 10MG (5 MG IN THE MORNING AND 5 MG IN THE EVENING)?LOT#1K6044B,OCT14
     Dates: start: 20111221, end: 20120710

REACTIONS (3)
  - Drug ineffective [Unknown]
  - Nasal dryness [Unknown]
  - Overdose [Unknown]
